FAERS Safety Report 15083614 (Version 1)
Quarter: 2018Q2

REPORT INFORMATION
  Report Type: Report from Study
  Country: US (occurrence: US)
  Receive Date: 20180628
  Receipt Date: 20180628
  Transmission Date: 20180711
  Serious: No
  Sender: FDA-Public Use
  Company Number: US-CLOVIS ONCOLOGY-CLO-2018-000295

PATIENT
  Age: 43 Year
  Sex: Female

DRUGS (3)
  1. RUBRACA [Suspect]
     Active Substance: RUCAPARIB CAMSYLATE
     Indication: OVARIAN CANCER
     Dosage: 600 MG BID
     Route: 048
     Dates: start: 20180322, end: 20180417
  2. RUBRACA [Suspect]
     Active Substance: RUCAPARIB CAMSYLATE
     Dosage: 300 MG, BID
     Route: 048
     Dates: start: 20180320, end: 201803
  3. RUBRACA [Suspect]
     Active Substance: RUCAPARIB CAMSYLATE
     Dosage: 300 MG, BID
     Route: 048
     Dates: start: 20180514

REACTIONS (9)
  - Myalgia [Unknown]
  - Nausea [Unknown]
  - Drug dose omission [Unknown]
  - Platelet count decreased [Not Recovered/Not Resolved]
  - Accidental underdose [Unknown]
  - Fatigue [Unknown]
  - Abdominal pain [Unknown]
  - Dysgeusia [Unknown]
  - Constipation [Unknown]

NARRATIVE: CASE EVENT DATE: 2018
